FAERS Safety Report 6570734-1 (Version None)
Quarter: 2010Q1

REPORT INFORMATION
  Report Type: 
  Country: None (occurrence: None)
  Receive Date: 20100204
  Receipt Date: 20100128
  Transmission Date: 20100710
  Serious: Yes (Death)
  Sender: FDA-Public Use
  Company Number: B0629613A

PATIENT
  Age: 27 Year
  Sex: Female

DRUGS (3)
  1. AMOXICILLIN [Suspect]
     Indication: MALAISE
  2. MINOCYCLINE HCL [Suspect]
     Dosage: 100MG PER DAY
     Dates: start: 20080528, end: 20080616
  3. ERYTHROMYCIN [Concomitant]

REACTIONS (4)
  - DRUG HYPERSENSITIVITY [None]
  - HEPATIC NECROSIS [None]
  - MULTI-ORGAN FAILURE [None]
  - VIRAL INFECTION [None]
